FAERS Safety Report 5397167-8 (Version None)
Quarter: 2007Q3

REPORT INFORMATION
  Report Type: 
  Country: None (occurrence: None)
  Receive Date: 20070723
  Receipt Date: 20070710
  Transmission Date: 20080115
  Serious: Yes (Death)
  Sender: FDA-Public Use
  Company Number: B0479392A

PATIENT
  Age: 36 Year
  Sex: Male

DRUGS (5)
  1. EPIVIR [Suspect]
     Indication: KAPOSI'S SARCOMA
  2. TENOFOVIR DISOPROXIL FUMARATE [Suspect]
     Indication: KAPOSI'S SARCOMA
  3. RITONAVIR (FORMULATION UNKNOWN) (RITONAVIR) [Suspect]
     Indication: KAPOSI'S SARCOMA
  4. ATAZANAVIR (FORMULATION UNKNOWN) (ATAZANAVIR) [Suspect]
     Indication: KAPOSI'S SARCOMA
  5. STEALTH LIP.DOXORUBICIN (FORMULATION UNKNOWN) (STEALTH LIP.DOXORUBICIN [Suspect]
     Indication: KAPOSI'S SARCOMA

REACTIONS (22)
  - ACID FAST BACILLI INFECTION [None]
  - ACUTE RESPIRATORY DISTRESS SYNDROME [None]
  - BODY TEMPERATURE INCREASED [None]
  - BRONCHOALVEOLAR LAVAGE ABNORMAL [None]
  - CHEST X-RAY ABNORMAL [None]
  - COMPUTERISED TOMOGRAM ABNORMAL [None]
  - COUGH [None]
  - CREPITATIONS [None]
  - DYSPNOEA [None]
  - GRANULOMA [None]
  - HUMAN HERPESVIRUS 8 INFECTION [None]
  - IMMUNE RECONSTITUTION SYNDROME [None]
  - INFLAMMATION [None]
  - KAPOSI'S SARCOMA [None]
  - MYCOBACTERIUM AVIUM COMPLEX INFECTION [None]
  - NECROTISING GRANULOMATOUS LYMPHADENITIS [None]
  - PLEURITIC PAIN [None]
  - PYREXIA [None]
  - RESPIRATORY FAILURE [None]
  - RESPIRATORY RATE INCREASED [None]
  - SPUTUM CULTURE POSITIVE [None]
  - WHEEZING [None]
